FAERS Safety Report 9661046 (Version 1)
Quarter: 2013Q4

REPORT INFORMATION
  Report Type: Spontaneous
  Country: FR (occurrence: FR)
  Receive Date: 20131031
  Receipt Date: 20131031
  Transmission Date: 20140711
  Serious: Yes (Hospitalization)
  Sender: FDA-Public Use
  Company Number: FR-GLAXOSMITHKLINE-B0934771A

PATIENT
  Age: 55 Year
  Sex: Male

DRUGS (13)
  1. ZELITREX [Suspect]
     Indication: PRODUCT USED FOR UNKNOWN INDICATION
     Dosage: 500MG PER DAY
     Route: 048
     Dates: start: 201305, end: 20130912
  2. BACTRIM FORTE [Suspect]
     Indication: PRODUCT USED FOR UNKNOWN INDICATION
     Dosage: 1TAB THREE TIMES PER WEEK
     Route: 048
     Dates: start: 201305, end: 20130910
  3. VELCADE [Concomitant]
     Indication: PLASMA CELL MYELOMA
  4. THALIDOMIDE [Concomitant]
     Indication: PLASMA CELL MYELOMA
  5. DEXAMETHASONE [Concomitant]
     Indication: PLASMA CELL MYELOMA
  6. LOVENOX [Concomitant]
  7. LEDERFOLINE [Concomitant]
  8. DOXORUBICINE [Concomitant]
     Indication: PLASMA CELL MYELOMA
  9. ETOPOSIDE [Concomitant]
     Indication: PLASMA CELL MYELOMA
  10. CISPLATINE [Concomitant]
     Indication: PLASMA CELL MYELOMA
  11. ENDOXAN [Concomitant]
     Indication: PLASMA CELL MYELOMA
  12. REVLIMID [Concomitant]
     Indication: PLASMA CELL MYELOMA
  13. FILGASTRIM [Concomitant]

REACTIONS (1)
  - Agranulocytosis [Recovered/Resolved]
